FAERS Safety Report 17892499 (Version 1)
Quarter: 2020Q2

REPORT INFORMATION
  Report Type: Other
  Country: US (occurrence: US)
  Receive Date: 20200612
  Receipt Date: 20200612
  Transmission Date: 20200714
  Serious: Yes (Life-Threatening, Hospitalization, Other)
  Sender: FDA-Public Use
  Company Number: US-C B FLEET CO INC-202005-US-001946

PATIENT
  Age: 16 Year
  Sex: Female

DRUGS (1)
  1. ACETAMINOPHEN. [Suspect]
     Active Substance: ACETAMINOPHEN
     Indication: INTENTIONAL OVERDOSE
     Dosage: 51 GRAMS (906 MG/KG)
     Route: 048

REACTIONS (3)
  - Intentional overdose [Recovered/Resolved]
  - Pancreatitis [Recovered/Resolved]
  - Toxicity to various agents [Recovered/Resolved]
